FAERS Safety Report 5023889-4 (Version None)
Quarter: 2006Q2

REPORT INFORMATION
  Report Type: 
  Country: None (occurrence: None)
  Receive Date: 20060607
  Receipt Date: 20060526
  Transmission Date: 20061013
  Serious: Yes (Death, Hospitalization)
  Sender: FDA-Public Use
  Company Number: 2006US001105

PATIENT
  Age: 54 Year
  Sex: Male

DRUGS (2)
  1. PROGRAF [Suspect]
     Indication: PROPHYLAXIS AGAINST TRANSPLANT REJECTION
  2. CELLCEPT [Concomitant]

REACTIONS (6)
  - CARDIAC ARREST [None]
  - CHORIOMENINGITIS LYMPHOCYTIC [None]
  - DIARRHOEA [None]
  - HEPATIC NECROSIS [None]
  - HEPATITIS [None]
  - THERAPY NON-RESPONDER [None]
